FAERS Safety Report 9506052 (Version 1)
Quarter: 2013Q1

REPORT INFORMATION
  Report Type: Spontaneous
  Country: US (occurrence: None)
  Receive Date: 20130305
  Receipt Date: 20130305
  Transmission Date: 20140127
  Serious: Yes (Hospitalization)
  Sender: FDA-Public Use
  Company Number: AXC-2012-000550

PATIENT
  Age: 3 Year
  Sex: Male
  Weight: 12.7 kg

DRUGS (1)
  1. CANASA (MESALAMINE) SUPPOSITORY, 1000MG [Suspect]
     Indication: COLITIS ULCERATIVE
     Route: 054
     Dates: start: 201205

REACTIONS (2)
  - Condition aggravated [None]
  - Application site pain [None]
